FAERS Safety Report 7957774-2 (Version None)
Quarter: 2011Q4

REPORT INFORMATION
  Report Type: 
  Country: None (occurrence: None)
  Receive Date: 20111205
  Receipt Date: 20111123
  Transmission Date: 20120403
  Serious: Yes (Hospitalization)
  Sender: FDA-Public Use
  Company Number: US-JNJFOC-NSADSS2001028679

PATIENT
  Age: 41 Year
  Sex: Male

DRUGS (3)
  1. REMICADE [Suspect]
     Indication: RHEUMATOID ARTHRITIS
     Route: 041
  2. REMICADE [Suspect]
     Route: 041
     Dates: start: 20010801, end: 20010801
  3. METHOTREXATE [Concomitant]

REACTIONS (3)
  - PYREXIA [None]
  - LEGIONELLA INFECTION [None]
  - PULMONARY HAEMORRHAGE [None]
